FAERS Safety Report 5708417-X (Version None)
Quarter: 2008Q2

REPORT INFORMATION
  Report Type: 
  Country: None (occurrence: None)
  Receive Date: 20080417
  Receipt Date: 20080408
  Transmission Date: 20081010
  Serious: Yes (Other)
  Sender: FDA-Public Use
  Company Number: CI-PFIZER INC-2008026357

PATIENT
  Sex: Female
  Weight: 65 kg

DRUGS (3)
  1. QUINAPRIL HCL AND HYDROCHLOROTHIAZIDE [Suspect]
     Indication: HYPERTENSION
     Dosage: TEXT:20MG/12.5MG
     Route: 048
  2. PARACETAMOL [Suspect]
     Indication: PYREXIA
     Route: 048
  3. ANTIMALARIALS [Suspect]

REACTIONS (1)
  - LOSS OF CONSCIOUSNESS [None]
